FAERS Safety Report 10471399 (Version 3)
Quarter: 2015Q1

REPORT INFORMATION
  Report Type: Spontaneous
  Country: US (occurrence: US)
  Receive Date: 20140923
  Receipt Date: 20150209
  Transmission Date: 20150720
  Serious: Yes (Other)
  Sender: FDA-Public Use
  Company Number: US-PFIZER INC-2014260553

PATIENT
  Age: 65 Year
  Sex: Male
  Weight: 79 kg

DRUGS (5)
  1. XALKORI [Suspect]
     Active Substance: CRIZOTINIB
     Indication: LUNG CARCINOMA CELL TYPE UNSPECIFIED STAGE IV
     Dosage: 250 MG, 2X/DAY
     Route: 048
     Dates: start: 201209, end: 201412
  2. XANAX [Concomitant]
     Active Substance: ALPRAZOLAM
     Dosage: 1 MG, 1X/DAY
  3. BABY ASPIRIN [Concomitant]
     Active Substance: ASPIRIN
     Dosage: UNK
  4. MEGARED [Concomitant]
     Dosage: UNK
  5. FISH OIL [Concomitant]
     Active Substance: FISH OIL
     Dosage: UNK

REACTIONS (3)
  - Arthralgia [Recovered/Resolved]
  - Arthropathy [Unknown]
  - Pain in extremity [Recovered/Resolved]

NARRATIVE: CASE EVENT DATE: 201409
